FAERS Safety Report 10722799 (Version 1)
Quarter: 2015Q1

REPORT INFORMATION
  Report Type: Spontaneous
  Country: GB (occurrence: GB)
  Receive Date: 20150120
  Receipt Date: 20150120
  Transmission Date: 20150721
  Serious: Yes (Life-Threatening)
  Sender: FDA-Public Use
  Company Number: GB-ACCORD-028091

PATIENT
  Age: 74 Year
  Sex: Female
  Weight: 73.03 kg

DRUGS (14)
  1. ISOSORBIDE/ISOSORBIDE DINITRATE/ISOSORBIDE MONONITRATE [Concomitant]
     Dates: start: 20140919
  2. FUROSEMIDE. [Concomitant]
     Active Substance: FUROSEMIDE
     Dates: start: 20141022, end: 20141119
  3. SIMVASTATIN. [Suspect]
     Active Substance: SIMVASTATIN
     Indication: PRODUCT USED FOR UNKNOWN INDICATION
     Dates: start: 20150107
  4. HYDROMOL CREAM [Concomitant]
     Dates: start: 20141126
  5. GLICLAZIDE [Concomitant]
     Active Substance: GLICLAZIDE
     Dates: start: 20140919
  6. AMITRIPTYLINE/AMITRIPTYLINE HYDROCHLORIDE/AMITRIPTYLINE PAMOATE/AMITRIPTYLINOXIDE [Concomitant]
     Dates: start: 20141121, end: 20141205
  7. CO-DYDRAMOL [Concomitant]
     Active Substance: ACETAMINOPHEN\DIHYDROCODEINE
     Dates: start: 20141006, end: 20141011
  8. ADCAL [Concomitant]
     Dates: start: 20140919, end: 20141017
  9. FUCIBET [Concomitant]
     Dates: start: 20141022, end: 20141105
  10. LANSOPRAZOLE. [Concomitant]
     Active Substance: LANSOPRAZOLE
     Dates: start: 20140919
  11. SAXAGLIPTIN [Concomitant]
     Active Substance: SAXAGLIPTIN
     Dates: start: 20140919
  12. BISOPROLOL [Concomitant]
     Active Substance: BISOPROLOL
     Dates: start: 20140919
  13. AMLODIPINE [Concomitant]
     Active Substance: AMLODIPINE BESYLATE
     Dates: start: 20140919
  14. ASPIRIN. [Concomitant]
     Active Substance: ASPIRIN
     Dates: start: 20140919

REACTIONS (1)
  - Acute kidney injury [Recovering/Resolving]

NARRATIVE: CASE EVENT DATE: 20150107
